FAERS Safety Report 6942029-5 (Version None)
Quarter: 2010Q3

REPORT INFORMATION
  Report Type: 
  Country: None (occurrence: None)
  Receive Date: 20100826
  Receipt Date: 20100817
  Transmission Date: 20110219
  Serious: Yes (Death, Hospitalization)
  Sender: FDA-Public Use
  Company Number: KR-JNJFOC-20100708367

PATIENT
  Age: 76 Year
  Sex: Male

DRUGS (11)
  1. INFLIXIMAB, RECOMBINANT [Suspect]
     Indication: RHEUMATOID ARTHRITIS
     Route: 042
  2. INFLIXIMAB, RECOMBINANT [Suspect]
     Route: 042
  3. CALCORT [Concomitant]
  4. CELEBREX [Concomitant]
  5. OPALMON [Concomitant]
  6. ULTRACET [Concomitant]
  7. ARAVA [Concomitant]
  8. HERBEN [Concomitant]
  9. UNIVASC [Concomitant]
  10. ASPIRIN [Concomitant]
  11. AFLOQUALONE [Concomitant]

REACTIONS (3)
  - ACUTE RESPIRATORY DISTRESS SYNDROME [None]
  - PNEUMONIA [None]
  - SEPSIS [None]
